FAERS Safety Report 8587446-5 (Version None)
Quarter: 2012Q3

REPORT INFORMATION
  Report Type: 
  Country: None (occurrence: None)
  Receive Date: 20120810
  Receipt Date: 20111003
  Transmission Date: 20120928
  Serious: No
  Sender: FDA-Public Use
  Company Number: US-ASTRAZENECA-2011SE59540

PATIENT
  Age: 53 Year
  Sex: Female

DRUGS (12)
  1. IBUPROFEN [Concomitant]
     Dosage: 800 MG THREE TIMES A DAY AS REQUIRED
  2. ERGOCALCIFEROL [Concomitant]
  3. FERROUS SULFATE TAB [Concomitant]
     Route: 048
  4. LYRICA [Concomitant]
  5. HERCEPTIN [Concomitant]
     Dosage: WEEKLY
     Dates: start: 20090501, end: 20090807
  6. FOLIC ACID [Concomitant]
     Route: 048
  7. AMLODIPINE [Concomitant]
     Route: 048
  8. CALCIUM CARBONATE [Concomitant]
     Route: 048
  9. ASPIRIN [Concomitant]
     Route: 048
  10. HERCEPTIN [Concomitant]
     Dosage: EVERY THREE WEEKS
     Dates: start: 20090925, end: 20100514
  11. ARIMIDEX [Suspect]
     Route: 048
     Dates: start: 20091101
  12. TAXOL [Concomitant]
     Dosage: WEEKLY
     Dates: start: 20090501, end: 20090807

REACTIONS (16)
  - MENOPAUSAL SYMPTOMS [None]
  - FATIGUE [None]
  - NIGHT SWEATS [None]
  - NASAL DISCOMFORT [None]
  - VITAMIN D DEFICIENCY [None]
  - PARAESTHESIA [None]
  - ASTHENIA [None]
  - DEPRESSION [None]
  - NEUROPATHY PERIPHERAL [None]
  - PANIC ATTACK [None]
  - GESTATIONAL DIABETES [None]
  - LYMPHOEDEMA [None]
  - TRIGGER FINGER [None]
  - MUSCULOSKELETAL STIFFNESS [None]
  - ARTHRALGIA [None]
  - HYPERTENSION [None]
